FAERS Safety Report 25384679 (Version 1)
Quarter: 2025Q2

REPORT INFORMATION
  Report Type: Report from Study
  Country: US (occurrence: US)
  Receive Date: 20250602
  Receipt Date: 20250602
  Transmission Date: 20250717
  Serious: Yes (Hospitalization, Other)
  Sender: MYLAN
  Company Number: US-MYLANLABS-2025M1044791

PATIENT
  Age: 16 Year
  Sex: Female

DRUGS (64)
  1. PREDNISONE [Suspect]
     Active Substance: PREDNISONE
     Indication: Still^s disease
  2. PREDNISONE [Suspect]
     Active Substance: PREDNISONE
     Route: 065
  3. PREDNISONE [Suspect]
     Active Substance: PREDNISONE
     Route: 065
  4. PREDNISONE [Suspect]
     Active Substance: PREDNISONE
  5. TACROLIMUS [Suspect]
     Active Substance: TACROLIMUS
     Indication: Prophylaxis against graft versus host disease
  6. TACROLIMUS [Suspect]
     Active Substance: TACROLIMUS
     Route: 065
  7. TACROLIMUS [Suspect]
     Active Substance: TACROLIMUS
     Route: 065
  8. TACROLIMUS [Suspect]
     Active Substance: TACROLIMUS
  9. MELPHALAN [Suspect]
     Active Substance: MELPHALAN
     Indication: Bone marrow conditioning regimen
  10. MELPHALAN [Suspect]
     Active Substance: MELPHALAN
     Route: 065
  11. MELPHALAN [Suspect]
     Active Substance: MELPHALAN
     Route: 065
  12. MELPHALAN [Suspect]
     Active Substance: MELPHALAN
  13. ETANERCEPT [Suspect]
     Active Substance: ETANERCEPT
     Indication: Still^s disease
  14. ETANERCEPT [Suspect]
     Active Substance: ETANERCEPT
     Route: 065
  15. ETANERCEPT [Suspect]
     Active Substance: ETANERCEPT
     Route: 065
  16. ETANERCEPT [Suspect]
     Active Substance: ETANERCEPT
  17. TOCILIZUMAB [Suspect]
     Active Substance: TOCILIZUMAB
     Indication: Still^s disease
  18. TOCILIZUMAB [Suspect]
     Active Substance: TOCILIZUMAB
     Route: 065
  19. TOCILIZUMAB [Suspect]
     Active Substance: TOCILIZUMAB
     Route: 065
  20. TOCILIZUMAB [Suspect]
     Active Substance: TOCILIZUMAB
  21. ADALIMUMAB [Suspect]
     Active Substance: ADALIMUMAB
     Indication: Still^s disease
  22. ADALIMUMAB [Suspect]
     Active Substance: ADALIMUMAB
     Route: 065
  23. ADALIMUMAB [Suspect]
     Active Substance: ADALIMUMAB
     Route: 065
  24. ADALIMUMAB [Suspect]
     Active Substance: ADALIMUMAB
  25. CANAKINUMAB [Suspect]
     Active Substance: CANAKINUMAB
     Indication: Still^s disease
  26. CANAKINUMAB [Suspect]
     Active Substance: CANAKINUMAB
  27. CANAKINUMAB [Suspect]
     Active Substance: CANAKINUMAB
     Route: 065
  28. CANAKINUMAB [Suspect]
     Active Substance: CANAKINUMAB
     Route: 065
  29. CANAKINUMAB [Suspect]
     Active Substance: CANAKINUMAB
  30. CANAKINUMAB [Suspect]
     Active Substance: CANAKINUMAB
  31. CANAKINUMAB [Suspect]
     Active Substance: CANAKINUMAB
     Route: 065
  32. CANAKINUMAB [Suspect]
     Active Substance: CANAKINUMAB
     Route: 065
  33. CANAKINUMAB [Suspect]
     Active Substance: CANAKINUMAB
  34. CANAKINUMAB [Suspect]
     Active Substance: CANAKINUMAB
     Route: 065
  35. CANAKINUMAB [Suspect]
     Active Substance: CANAKINUMAB
  36. CANAKINUMAB [Suspect]
     Active Substance: CANAKINUMAB
     Route: 065
  37. ALEMTUZUMAB [Suspect]
     Active Substance: ALEMTUZUMAB
     Indication: Bone marrow conditioning regimen
  38. ALEMTUZUMAB [Suspect]
     Active Substance: ALEMTUZUMAB
     Route: 058
  39. ALEMTUZUMAB [Suspect]
     Active Substance: ALEMTUZUMAB
     Route: 058
  40. ALEMTUZUMAB [Suspect]
     Active Substance: ALEMTUZUMAB
  41. FLUDARABINE [Suspect]
     Active Substance: FLUDARABINE PHOSPHATE
     Indication: Bone marrow conditioning regimen
  42. FLUDARABINE [Suspect]
     Active Substance: FLUDARABINE PHOSPHATE
     Route: 065
  43. FLUDARABINE [Suspect]
     Active Substance: FLUDARABINE PHOSPHATE
     Route: 065
  44. FLUDARABINE [Suspect]
     Active Substance: FLUDARABINE PHOSPHATE
  45. METHYLPREDNISOLONE [Suspect]
     Active Substance: METHYLPREDNISOLONE
     Indication: Prophylaxis against graft versus host disease
  46. METHYLPREDNISOLONE [Suspect]
     Active Substance: METHYLPREDNISOLONE
     Route: 065
  47. METHYLPREDNISOLONE [Suspect]
     Active Substance: METHYLPREDNISOLONE
     Route: 065
  48. METHYLPREDNISOLONE [Suspect]
     Active Substance: METHYLPREDNISOLONE
  49. ANAKINRA [Suspect]
     Active Substance: ANAKINRA
     Indication: Still^s disease
     Dosage: UNK, QD
  50. ANAKINRA [Suspect]
     Active Substance: ANAKINRA
     Dosage: UNK, QD
     Route: 065
  51. ANAKINRA [Suspect]
     Active Substance: ANAKINRA
     Dosage: UNK, QD
     Route: 065
  52. ANAKINRA [Suspect]
     Active Substance: ANAKINRA
     Dosage: UNK, QD
  53. LEFLUNOMIDE [Suspect]
     Active Substance: LEFLUNOMIDE
     Indication: Still^s disease
  54. LEFLUNOMIDE [Suspect]
     Active Substance: LEFLUNOMIDE
     Route: 065
  55. LEFLUNOMIDE [Suspect]
     Active Substance: LEFLUNOMIDE
     Route: 065
  56. LEFLUNOMIDE [Suspect]
     Active Substance: LEFLUNOMIDE
  57. HYDROXYCHLOROQUINE [Suspect]
     Active Substance: HYDROXYCHLOROQUINE
     Indication: Still^s disease
  58. HYDROXYCHLOROQUINE [Suspect]
     Active Substance: HYDROXYCHLOROQUINE
     Route: 065
  59. HYDROXYCHLOROQUINE [Suspect]
     Active Substance: HYDROXYCHLOROQUINE
     Route: 065
  60. HYDROXYCHLOROQUINE [Suspect]
     Active Substance: HYDROXYCHLOROQUINE
  61. CYCLOSPORINE [Concomitant]
     Active Substance: CYCLOSPORINE
     Indication: Still^s disease
  62. CYCLOSPORINE [Concomitant]
     Active Substance: CYCLOSPORINE
     Route: 065
  63. CYCLOSPORINE [Concomitant]
     Active Substance: CYCLOSPORINE
     Route: 065
  64. CYCLOSPORINE [Concomitant]
     Active Substance: CYCLOSPORINE

REACTIONS (3)
  - Drug ineffective [Unknown]
  - Epstein-Barr virus infection [Unknown]
  - Off label use [Unknown]
